FAERS Safety Report 8448796-6 (Version None)
Quarter: 2012Q2

REPORT INFORMATION
  Report Type: 
  Country: None (occurrence: None)
  Receive Date: 20120619
  Receipt Date: 20120615
  Transmission Date: 20120825
  Serious: Yes (Other)
  Sender: FDA-Public Use
  Company Number: US-PFIZER INC-2012145036

PATIENT
  Sex: Female

DRUGS (1)
  1. LYRICA [Suspect]
     Dosage: 75 MG, 4X/DAY
     Route: 048

REACTIONS (3)
  - PSYCHOTIC DISORDER [None]
  - SPINAL DISORDER [None]
  - MENTAL IMPAIRMENT [None]
